FAERS Safety Report 17164321 (Version 1)
Quarter: 2019Q4

REPORT INFORMATION
  Report Type: Spontaneous
  Country: US (occurrence: US)
  Receive Date: 20191125
  Receipt Date: 20191125
  Transmission Date: 20200122
  Serious: No
  Sender: FDA-Public Use
  Company Number: None

PATIENT
  Age: 64 Year
  Sex: Male

DRUGS (1)
  1. MYCOPHENOLATE MOF TAB [Suspect]
     Active Substance: MYCOPHENOLATE MOFETIL
     Route: 048
     Dates: start: 201811

REACTIONS (6)
  - Upper respiratory tract infection [None]
  - Nasopharyngitis [None]
  - Ejaculation delayed [None]
  - Ejaculation disorder [None]
  - Off label use [None]
  - Burning sensation [None]

NARRATIVE: CASE EVENT DATE: 20191125
